FAERS Safety Report 10999661 (Version 1)
Quarter: 2015Q2

REPORT INFORMATION
  Report Type: Spontaneous
  Country: US (occurrence: US)
  Receive Date: 20150408
  Receipt Date: 20150408
  Transmission Date: 20150821
  Serious: Yes (Hospitalization)
  Sender: FDA-Public Use
  Company Number: US-JNJFOC-20150403904

PATIENT
  Sex: Male

DRUGS (8)
  1. BACTRIM DS [Concomitant]
     Active Substance: SULFAMETHOXAZOLE\TRIMETHOPRIM
  2. ASPIRIN. [Concomitant]
     Active Substance: ASPIRIN
  3. RAPAFLO [Concomitant]
     Active Substance: SILODOSIN
  4. CLOPIDOGREL BISULFATE. [Concomitant]
     Active Substance: CLOPIDOGREL BISULFATE
  5. ACYCLOVIR. [Concomitant]
     Active Substance: ACYCLOVIR
  6. IMBRUVICA [Suspect]
     Active Substance: IBRUTINIB
     Indication: CHRONIC LYMPHOCYTIC LEUKAEMIA
     Route: 048
     Dates: start: 20150324, end: 2015
  7. SIMVASTATIN. [Concomitant]
     Active Substance: SIMVASTATIN
  8. LEVOTHYROXINE SODIUM. [Concomitant]
     Active Substance: LEVOTHYROXINE SODIUM

REACTIONS (3)
  - Platelet count decreased [Unknown]
  - Haematemesis [Unknown]
  - Nausea [Unknown]

NARRATIVE: CASE EVENT DATE: 2015
